FAERS Safety Report 6669969-9 (Version None)
Quarter: 2010Q2

REPORT INFORMATION
  Report Type: 
  Country: None (occurrence: None)
  Receive Date: 20100406
  Receipt Date: 20100128
  Transmission Date: 20101027
  Serious: No
  Sender: FDA-Public Use
  Company Number: US-ALLERGAN-1000935US

PATIENT
  Age: 65 Year
  Sex: Female

DRUGS (6)
  1. LATISSE [Suspect]
     Indication: GROWTH OF EYELASHES
     Dosage: 1 GTT, QHS
     Route: 061
     Dates: start: 20091119
  2. SIMVASTATIN [Concomitant]
  3. FEXOFENADINE [Concomitant]
  4. OMEPRAZOLE [Concomitant]
  5. ASPIRIN [Concomitant]
     Dosage: UNK
  6. IBUPROFEN [Concomitant]

REACTIONS (1)
  - ERYTHEMA OF EYELID [None]
